FAERS Safety Report 10487848 (Version 1)
Quarter: 2014Q4

REPORT INFORMATION
  Report Type: Spontaneous
  Country: DE (occurrence: DE)
  Receive Date: 20141001
  Receipt Date: 20141001
  Transmission Date: 20150528
  Serious: Yes (Other)
  Sender: FDA-Public Use
  Company Number: DE-TEVA-512334GER

PATIENT
  Age: 9 Decade
  Sex: Male

DRUGS (2)
  1. FOLIC ACID. [Concomitant]
     Active Substance: FOLIC ACID
     Indication: COLON CANCER
     Route: 065
     Dates: start: 2003
  2. FLUOROURACIL. [Suspect]
     Active Substance: FLUOROURACIL
     Indication: COLON CANCER
     Route: 050
     Dates: start: 2003

REACTIONS (3)
  - Cytogenetic abnormality [Unknown]
  - Nausea [Unknown]
  - Vomiting [Unknown]
